FAERS Safety Report 7527677-6 (Version None)
Quarter: 2011Q2

REPORT INFORMATION
  Report Type: 
  Country: None (occurrence: None)
  Receive Date: 20110607
  Receipt Date: 20110524
  Transmission Date: 20111010
  Serious: Yes (Death, Hospitalization, Other)
  Sender: FDA-Public Use
  Company Number: PHHY2010FR91009

PATIENT
  Sex: Female
  Weight: 66 kg

DRUGS (1)
  1. ZOMETA [Suspect]
     Dosage: 4 MG, EVERY 4 WEEKS
     Route: 042
     Dates: start: 20090201

REACTIONS (3)
  - JAUNDICE [None]
  - GENERAL PHYSICAL HEALTH DETERIORATION [None]
  - ASCITES [None]
